FAERS Safety Report 5910661-3 (Version None)
Quarter: 2008Q4

REPORT INFORMATION
  Report Type: 
  Country: None (occurrence: None)
  Receive Date: 20081007
  Receipt Date: 20080926
  Transmission Date: 20090506
  Serious: Yes (Hospitalization)
  Sender: FDA-Public Use
  Company Number: JP-BAYER-200812271BYL

PATIENT
  Age: 71 Year
  Sex: Male
  Weight: 67 kg

DRUGS (7)
  1. NEXAVAR [Suspect]
     Indication: RENAL CELL CARCINOMA STAGE III
     Dosage: UNIT DOSE: 200 MG
     Route: 048
     Dates: start: 20080513, end: 20080605
  2. BUFFERIN [Concomitant]
     Indication: ONCOLOGIC COMPLICATION
     Route: 048
  3. AMLODIN OD [Concomitant]
     Indication: ONCOLOGIC COMPLICATION
     Route: 048
  4. URINORM [Concomitant]
     Indication: ONCOLOGIC COMPLICATION
     Route: 048
     Dates: end: 20080513
  5. RIZE [Concomitant]
     Indication: ONCOLOGIC COMPLICATION
     Route: 048
  6. LASIX [Concomitant]
     Indication: ONCOLOGIC COMPLICATION
     Route: 048
  7. ZYLORIC [Concomitant]
     Indication: ONCOLOGIC COMPLICATION
     Route: 048
     Dates: start: 20080514, end: 20080521

REACTIONS (4)
  - DRUG ERUPTION [None]
  - HEPATIC FUNCTION ABNORMAL [None]
  - HYPERURICAEMIA [None]
  - PALMAR-PLANTAR ERYTHRODYSAESTHESIA SYNDROME [None]
